FAERS Safety Report 13222408 (Version 2)
Quarter: 2018Q1

REPORT INFORMATION
  Report Type: Spontaneous
  Country: US (occurrence: US)
  Receive Date: 20170211
  Receipt Date: 20180130
  Transmission Date: 20180508
  Serious: No
  Sender: FDA-Public Use
  Company Number: US-ACORDA-ACO_133164_2017

PATIENT
  Age: 64 Year
  Sex: Male
  Weight: 76.64 kg

DRUGS (20)
  1. NUVIGIL [Concomitant]
     Active Substance: ARMODAFINIL
     Indication: PRODUCT USED FOR UNKNOWN INDICATION
     Dosage: 250 MG, 1/2-1 TABLET DAILY
     Route: 048
  2. ROBAXIN [Concomitant]
     Active Substance: METHOCARBAMOL
     Indication: PRODUCT USED FOR UNKNOWN INDICATION
     Dosage: 750 MG, TWICE DAILY AS NEEDED
     Route: 048
  3. PRILOSEC [Concomitant]
     Active Substance: OMEPRAZOLE MAGNESIUM
     Indication: PRODUCT USED FOR UNKNOWN INDICATION
     Dosage: 20 MG, QD
     Route: 048
  4. DIAZEPAM. [Concomitant]
     Active Substance: DIAZEPAM
     Indication: PRODUCT USED FOR UNKNOWN INDICATION
     Dosage: 5 MG, PRN
     Route: 065
  5. TECFIDERA [Suspect]
     Active Substance: DIMETHYL FUMARATE
     Dosage: 240 MG, BID
     Route: 048
     Dates: end: 201702
  6. COPAXONE [Concomitant]
     Active Substance: GLATIRAMER ACETATE
     Indication: PRODUCT USED FOR UNKNOWN INDICATION
     Route: 065
  7. LOTENSIN [Concomitant]
     Active Substance: BENAZEPRIL HYDROCHLORIDE
     Indication: PRODUCT USED FOR UNKNOWN INDICATION
     Dosage: 40 MG, QD
     Route: 048
  8. LIPITOR [Concomitant]
     Active Substance: ATORVASTATIN CALCIUM
     Indication: PRODUCT USED FOR UNKNOWN INDICATION
     Dosage: 20 MG, QD
     Route: 048
  9. AMPYRA [Suspect]
     Active Substance: DALFAMPRIDINE
     Indication: PRODUCT USED FOR UNKNOWN INDICATION
     Dosage: 10 MG, BID
     Route: 048
     Dates: start: 20120809
  10. TECFIDERA [Suspect]
     Active Substance: DIMETHYL FUMARATE
     Indication: MULTIPLE SCLEROSIS
     Dosage: 120 MG, BID
     Route: 048
     Dates: start: 20130416, end: 20161020
  11. CYMBALTA [Suspect]
     Active Substance: DULOXETINE HYDROCHLORIDE
     Dosage: 60 MG, QD
     Route: 048
  12. NEURONTIN [Concomitant]
     Active Substance: GABAPENTIN
     Indication: PRODUCT USED FOR UNKNOWN INDICATION
     Dosage: 2 DF, TID
     Route: 048
  13. PROVIGIL [Concomitant]
     Active Substance: MODAFINIL
     Indication: PRODUCT USED FOR UNKNOWN INDICATION
     Dosage: 200 MG, PRN
     Route: 048
  14. BACLOFEN. [Suspect]
     Active Substance: BACLOFEN
     Indication: PRODUCT USED FOR UNKNOWN INDICATION
     Dosage: UNK
     Route: 065
  15. CYMBALTA [Suspect]
     Active Substance: DULOXETINE HYDROCHLORIDE
     Indication: NEURALGIA
     Dosage: 30 MG, QD AS NEEDED FOR 2 WEEKS
     Route: 048
  16. TRAMADOL. [Suspect]
     Active Substance: TRAMADOL
     Indication: PRODUCT USED FOR UNKNOWN INDICATION
     Dosage: 50 MG, 1-2 DAILY
     Route: 048
  17. SENOKOT [Concomitant]
     Active Substance: SENNOSIDES
     Indication: PRODUCT USED FOR UNKNOWN INDICATION
     Dosage: 50 MG, QD
     Route: 048
  18. SOLU-MEDROL [Concomitant]
     Active Substance: METHYLPREDNISOLONE SODIUM SUCCINATE
     Indication: PRODUCT USED FOR UNKNOWN INDICATION
     Dosage: 1000 MG, FOR 3 DAYS INFUSE OVER 1.5-2 HOURS AS TOLERATED
     Route: 042
  19. HYDROCHLOROTHIAZIDE. [Concomitant]
     Active Substance: HYDROCHLOROTHIAZIDE
     Indication: PRODUCT USED FOR UNKNOWN INDICATION
     Dosage: 12.5 MG, UNK
     Route: 048
  20. SUMATRIPTAN. [Concomitant]
     Active Substance: SUMATRIPTAN
     Indication: HEADACHE
     Dosage: 100 MG AT THE ONSET OF HEADACHE (MAY REPEAT X1 IN 24 HORUS)
     Route: 048

REACTIONS (48)
  - Sleep apnoea syndrome [Unknown]
  - Dysphagia [Unknown]
  - Neuropathy peripheral [Unknown]
  - Lumbar radiculopathy [Unknown]
  - General physical health deterioration [Recovering/Resolving]
  - JC polyomavirus test positive [Unknown]
  - Neuralgia [Unknown]
  - Muscle spasms [Unknown]
  - Contusion [Unknown]
  - Gait spastic [Unknown]
  - Hypoaesthesia [Unknown]
  - Visual impairment [Unknown]
  - Muscular weakness [Unknown]
  - Fall [Unknown]
  - Memory impairment [Unknown]
  - Diplopia [Unknown]
  - Pollakiuria [Unknown]
  - Radiculitis brachial [Unknown]
  - Dizziness [Unknown]
  - Laboratory test abnormal [Unknown]
  - Arthralgia [Unknown]
  - Insomnia [Recovered/Resolved]
  - Hypoacusis [Unknown]
  - Neurogenic bladder [Unknown]
  - Anti-JC virus antibody index [Unknown]
  - Sexual dysfunction [Unknown]
  - Muscular weakness [Unknown]
  - Dysarthria [Unknown]
  - Fatigue [Recovered/Resolved]
  - Headache [Unknown]
  - Condition aggravated [Unknown]
  - Central nervous system lesion [Unknown]
  - Hypertension [Unknown]
  - Dysuria [Unknown]
  - Balance disorder [Unknown]
  - Device failure [Recovered/Resolved]
  - Muscle spasticity [Unknown]
  - Anal incontinence [Unknown]
  - Temperature intolerance [Unknown]
  - Peripheral swelling [Unknown]
  - Tinnitus [Unknown]
  - Dry eye [Unknown]
  - Constipation [Unknown]
  - Muscular weakness [Recovered/Resolved]
  - Bladder disorder [Unknown]
  - Vision blurred [Unknown]
  - Pain [Unknown]
  - Prostatic disorder [Unknown]

NARRATIVE: CASE EVENT DATE: 20160419
